FAERS Safety Report 13437794 (Version 1)
Quarter: 2017Q2

REPORT INFORMATION
  Report Type: Spontaneous
  Country: US (occurrence: US)
  Receive Date: 20170413
  Receipt Date: 20170413
  Transmission Date: 20170830
  Serious: No
  Sender: FDA-Public Use
  Company Number: US-SA-2016SA122315

PATIENT
  Age: 27 Year
  Sex: Male

DRUGS (1)
  1. ALLEGRA-D 24 HOUR [Suspect]
     Active Substance: FEXOFENADINE HYDROCHLORIDE\PSEUDOEPHEDRINE HYDROCHLORIDE
     Indication: HYPERSENSITIVITY
     Dosage: 180MG/240MG
     Route: 048
     Dates: start: 20160629, end: 20160629

REACTIONS (10)
  - Dyspepsia [Recovering/Resolving]
  - Hypersensitivity [Recovering/Resolving]
  - Vomiting [Recovering/Resolving]
  - Somnolence [Recovering/Resolving]
  - Nausea [Recovering/Resolving]
  - Condition aggravated [Unknown]
  - Flatulence [Recovering/Resolving]
  - Unevaluable event [Recovering/Resolving]
  - Vertigo [Recovering/Resolving]
  - Abdominal pain upper [Recovering/Resolving]
